FAERS Safety Report 12675276 (Version 2)
Quarter: 2016Q3

REPORT INFORMATION
  Report Type: Report from Study
  Country: US (occurrence: US)
  Receive Date: 20160823
  Receipt Date: 20160829
  Transmission Date: 20161109
  Serious: No
  Sender: FDA-Public Use
  Company Number: PHEH2016US020707

PATIENT
  Age: 63 Year
  Sex: Female

DRUGS (2)
  1. COSENTYX [Suspect]
     Active Substance: SECUKINUMAB
     Indication: ARTHRITIS
  2. COSENTYX [Suspect]
     Active Substance: SECUKINUMAB
     Indication: PSORIASIS
     Dosage: UNK
     Route: 065
     Dates: start: 20160714

REACTIONS (8)
  - Ear pain [Unknown]
  - Lacrimation increased [Unknown]
  - Malaise [Recovered/Resolved]
  - Oropharyngeal pain [Unknown]
  - Ocular hyperaemia [Unknown]
  - Eye irritation [Unknown]
  - Respiratory tract congestion [Unknown]
  - Psoriasis [Unknown]

NARRATIVE: CASE EVENT DATE: 20160714
